FAERS Safety Report 10544872 (Version 1)
Quarter: 2014Q4

REPORT INFORMATION
  Report Type: Spontaneous
  Country: US (occurrence: None)
  Receive Date: 20141010
  Receipt Date: 20141010
  Transmission Date: 20150529
  Serious: Yes (Other)
  Sender: FDA-Public Use
  Company Number: 163-POMAL-14064529

PATIENT
  Age: 63 Year
  Sex: Female
  Weight: 49.9 kg

DRUGS (4)
  1. OXYCONTIN (OXYCODONE HYDROCHLORIDE) (UNKNOWN) [Concomitant]
  2. CLARITHROMYCIN (CLARITHROMYCIN) (UNKNOWN) (CLARITHROMYCIN) [Concomitant]
     Active Substance: CLARITHROMYCIN
  3. POMALYST [Suspect]
     Active Substance: POMALIDOMIDE
     Indication: PLASMA CELL MYELOMA
     Dosage: 4 MG , 21 IN 21 D,  PO
     Route: 048
     Dates: start: 20140414
  4. DEXAMETHASONE (DEXAMETHASONE) (TABLETS) [Concomitant]
     Active Substance: DEXAMETHASONE

REACTIONS (1)
  - Deep vein thrombosis [None]

NARRATIVE: CASE EVENT DATE: 20140603
